FAERS Safety Report 9994567 (Version 2)
Quarter: 2014Q1

REPORT INFORMATION
  Report Type: Spontaneous
  Country: DE (occurrence: DE)
  Receive Date: 20140311
  Receipt Date: 20140318
  Transmission Date: 20141002
  Serious: Yes (Hospitalization)
  Sender: FDA-Public Use
  Company Number: DE-RANBAXY-2014RR-78674

PATIENT
  Age: 18 Year
  Sex: Male

DRUGS (2)
  1. IBUPROFEN [Suspect]
     Indication: BACK PAIN
     Dosage: 7 X 400 MG TOTAL
     Route: 048
     Dates: start: 20140125, end: 20140125
  2. PARACETAMOL [Concomitant]
     Indication: BACK PAIN
     Dosage: UNK
     Route: 048

REACTIONS (2)
  - Haemoptysis [Unknown]
  - Pulmonary haemorrhage [Unknown]
